FAERS Safety Report 24391777 (Version 1)
Quarter: 2024Q4

REPORT INFORMATION
  Report Type: Spontaneous
  Country: US (occurrence: None)
  Receive Date: 20241002
  Receipt Date: 20241002
  Transmission Date: 20250114
  Serious: No
  Sender: Public
  Company Number: None

PATIENT
  Age: 48 Year
  Sex: Female
  Weight: 83 kg

DRUGS (1)
  1. NIRMATRELVIR [Suspect]
     Active Substance: NIRMATRELVIR
     Indication: COVID-19
     Route: 048
     Dates: start: 20240208

REACTIONS (3)
  - Diarrhoea [None]
  - Dry mouth [None]
  - Taste disorder [None]

NARRATIVE: CASE EVENT DATE: 20240216
